FAERS Safety Report 5840688-1 (Version None)
Quarter: 2008Q3

REPORT INFORMATION
  Report Type: 
  Country: None (occurrence: None)
  Receive Date: 20080811
  Receipt Date: 20080806
  Transmission Date: 20090109
  Serious: Yes (Death, Other)
  Sender: FDA-Public Use
  Company Number: PHEH2006US02259

PATIENT

DRUGS (8)
  1. ZOMETA [Suspect]
     Indication: METASTASES TO BONE
     Dosage: 4 MG, MONTHLY
     Route: 042
     Dates: start: 20031101, end: 20050706
  2. AREDIA [Suspect]
  3. ENDOCET [Concomitant]
     Dosage: 5/325, 3-4/DAY
  4. HYDROCHLOROTHIAZIDE [Concomitant]
     Indication: HYPERTENSION
     Dosage: 12.5 MG, QD
  5. CALCIUM W/VITAMIN D NOS [Concomitant]
     Dosage: UNK, QD
  6. FERROUS SULFATE TAB [Concomitant]
     Dosage: UNK, QD
  7. SENOKOT [Concomitant]
  8. RADIATION THERAPY [Concomitant]
     Dosage: 3000CGY
     Dates: end: 20040123

REACTIONS (39)
  - ANGIOSARCOMA [None]
  - ANXIETY [None]
  - BIOPSY BONE ABNORMAL [None]
  - BONE DISORDER [None]
  - BONE FRAGMENTATION [None]
  - CATARACT OPERATION [None]
  - DEFORMITY [None]
  - DENTAL OPERATION [None]
  - DEPRESSION [None]
  - EMOTIONAL DISTRESS [None]
  - ERYTHEMA [None]
  - GINGIVAL BLEEDING [None]
  - GINGIVAL SWELLING [None]
  - HEADACHE [None]
  - HEPATIC LESION [None]
  - HIP ARTHROPLASTY [None]
  - IMPAIRED HEALING [None]
  - INJURY [None]
  - JOINT ARTHROPLASTY [None]
  - MALIGNANT NEOPLASM PROGRESSION [None]
  - MASTICATION DISORDER [None]
  - METASTASES TO BONE [None]
  - METASTASES TO LIVER [None]
  - METASTASES TO LUNG [None]
  - METASTATIC NEOPLASM [None]
  - NEURALGIA [None]
  - ORAL CAVITY FISTULA [None]
  - OSTEONECROSIS [None]
  - OSTEOTOMY [None]
  - PAIN [None]
  - PAIN IN JAW [None]
  - PERIODONTAL INFECTION [None]
  - SENSORY LOSS [None]
  - SPINAL OSTEOARTHRITIS [None]
  - STOMATITIS NECROTISING [None]
  - TOOTH ABSCESS [None]
  - TOOTH DISORDER [None]
  - TOOTH EXTRACTION [None]
  - WEIGHT DECREASED [None]
